FAERS Safety Report 8664596 (Version 6)
Quarter: 2014Q1

REPORT INFORMATION
  Report Type: Spontaneous
  Country: US (occurrence: US)
  Receive Date: 20120713
  Receipt Date: 20140207
  Transmission Date: 20141002
  Serious: Yes (Other)
  Sender: FDA-Public Use
  Company Number: US-ASTRAZENECA-2012SE42888

PATIENT
  Age: 84 Year
  Sex: Female
  Weight: 77.1 kg

DRUGS (13)
  1. NEXIUM [Suspect]
     Indication: GASTROOESOPHAGEAL REFLUX DISEASE
     Route: 048
     Dates: start: 2012
  2. NEXIUM [Suspect]
     Indication: GASTROOESOPHAGEAL REFLUX DISEASE
     Dosage: EVERY OTHER DAY
     Route: 048
  3. ATENOLOL [Suspect]
     Indication: BLOOD PRESSURE ABNORMAL
     Route: 048
  4. OTHER MEDICATIONS [Suspect]
     Route: 065
  5. LEVOTHYROXINE [Concomitant]
     Indication: GOITRE
     Route: 048
     Dates: start: 1994
  6. CLONIDINE [Concomitant]
     Indication: BLOOD PRESSURE ABNORMAL
     Route: 048
  7. LOSARTAN [Concomitant]
     Indication: BLOOD PRESSURE ABNORMAL
     Route: 048
  8. AMLODIPINE [Concomitant]
     Indication: ANGIOPATHY
     Route: 048
  9. NIACIN [Concomitant]
     Route: 048
  10. SIMVASTATIN [Concomitant]
     Route: 048
  11. CLOPIDOGREL [Concomitant]
     Route: 048
  12. FISH OIL [Concomitant]
     Route: 048
  13. VITAMIN D3 [Concomitant]
     Route: 048

REACTIONS (15)
  - Skin cancer [Not Recovered/Not Resolved]
  - Spinal disorder [Unknown]
  - Musculoskeletal discomfort [Unknown]
  - Back pain [Unknown]
  - Blood cholesterol increased [Unknown]
  - Dyspepsia [Unknown]
  - Eye disorder [Unknown]
  - Throat irritation [Unknown]
  - Abdominal discomfort [Unknown]
  - Headache [Unknown]
  - Body height decreased [Unknown]
  - Diarrhoea [Recovered/Resolved]
  - Therapeutic response unexpected [Not Recovered/Not Resolved]
  - Drug dose omission [Unknown]
  - Intentional drug misuse [Not Recovered/Not Resolved]
